FAERS Safety Report 9871463 (Version 1)
Quarter: 2014Q1

REPORT INFORMATION
  Report Type: Spontaneous
  Country: FR (occurrence: FR)
  Receive Date: 20140205
  Receipt Date: 20140205
  Transmission Date: 20141002
  Serious: Yes (Hospitalization)
  Sender: FDA-Public Use
  Company Number: FR-UCBSA-111090

PATIENT
  Age: 41 Year
  Sex: Female

DRUGS (10)
  1. KEPPRA [Suspect]
     Dates: start: 20131128, end: 20131207
  2. DEPAKINE [Suspect]
     Dates: start: 20131111, end: 20131207
  3. TAZOCILLINE [Suspect]
     Route: 042
     Dates: end: 20131123
  4. DUROGESIC [Suspect]
     Route: 062
     Dates: start: 20131201
  5. INEXIUM [Suspect]
     Dates: start: 20131121, end: 20131206
  6. CIFLOX [Suspect]
     Dates: end: 20131130
  7. MORPHINE [Concomitant]
  8. ACUPAN [Concomitant]
  9. LEXOMIL [Concomitant]
  10. NON-FRACTIONATED HEPARINE [Concomitant]

REACTIONS (1)
  - Thrombocytopenia [Recovered/Resolved]
